FAERS Safety Report 17542125 (Version 2)
Quarter: 2020Q1

REPORT INFORMATION
  Report Type: Spontaneous
  Country: US (occurrence: US)
  Receive Date: 20200313
  Receipt Date: 20200330
  Transmission Date: 20200409
  Serious: Yes (Other)
  Sender: FDA-Public Use
  Company Number: US-ALLERGAN-2010084US

PATIENT
  Sex: Female
  Weight: 56.69 kg

DRUGS (1)
  1. KYBELLA [Suspect]
     Active Substance: DEOXYCHOLIC ACID
     Indication: FAT TISSUE INCREASED
     Dosage: 2.2 ML, SINGLE (0.2 ML PER INJECTION OVER 11 SITES)
     Route: 058
     Dates: start: 202002, end: 202002

REACTIONS (4)
  - Injection site pain [Not Recovered/Not Resolved]
  - Injection site necrosis [Recovered/Resolved]
  - Injection site exfoliation [Recovered/Resolved]
  - Injection site bruising [Recovered/Resolved]

NARRATIVE: CASE EVENT DATE: 202002
